FAERS Safety Report 4383990-5 (Version None)
Quarter: 2004Q2

REPORT INFORMATION
  Report Type: 
  Country: None (occurrence: None)
  Receive Date: 20040621
  Receipt Date: 20040603
  Transmission Date: 20050107
  Serious: Yes (Hospitalization)
  Sender: FDA-Public Use
  Company Number: 199323

PATIENT
  Age: 52 Year
  Sex: Female
  Weight: 48.9885 kg

DRUGS (5)
  1. AVONEX [Suspect]
     Indication: MULTIPLE SCLEROSIS
     Dosage: 30 MCG QW IM
     Route: 030
     Dates: start: 19960101, end: 19970101
  2. AVONEX [Suspect]
     Indication: MULTIPLE SCLEROSIS
     Dosage: 30 MCG QW IM
     Route: 030
     Dates: start: 19990101, end: 20010101
  3. PROZAC [Concomitant]
  4. ZOLOFT [Concomitant]
  5. WELLBUTRIN [Concomitant]

REACTIONS (4)
  - CONDITION AGGRAVATED [None]
  - MULTIPLE SCLEROSIS [None]
  - NAUSEA [None]
  - VERTIGO [None]
